FAERS Safety Report 5499871-X (Version None)
Quarter: 2007Q4

REPORT INFORMATION
  Report Type: 
  Country: None (occurrence: None)
  Receive Date: 20071026
  Receipt Date: 20071016
  Transmission Date: 20080405
  Serious: Yes (Hospitalization)
  Sender: FDA-Public Use
  Company Number: CH-PFIZER INC-2007086298

PATIENT
  Age: 76 Year
  Sex: Female

DRUGS (9)
  1. SINEQUAN [Suspect]
     Dosage: DAILY DOSE:25MG
     Route: 048
     Dates: start: 20070426, end: 20070429
  2. SINEQUAN [Suspect]
     Dosage: DAILY DOSE:50MG
     Route: 048
  3. SEROQUEL [Suspect]
     Dosage: DAILY DOSE:125MG
     Route: 048
     Dates: start: 20070411, end: 20070423
  4. SEROQUEL [Suspect]
     Dosage: DAILY DOSE:100MG
     Route: 048
     Dates: start: 20070424, end: 20070424
  5. SEROQUEL [Suspect]
     Dosage: DAILY DOSE:75MG
     Route: 048
     Dates: start: 20070425, end: 20070520
  6. SEROQUEL [Suspect]
     Dosage: DAILY DOSE:50MG
     Route: 048
     Dates: start: 20070521, end: 20070521
  7. SEROQUEL [Suspect]
     Dosage: DAILY DOSE:75MG
     Route: 048
     Dates: start: 20070522, end: 20070522
  8. SEROQUEL [Suspect]
     Dosage: DAILY DOSE:50MG
     Route: 048
     Dates: start: 20070523, end: 20070531
  9. REMERON [Concomitant]
     Route: 048

REACTIONS (1)
  - BLOOD PROLACTIN INCREASED [None]
